FAERS Safety Report 9961551 (Version 5)
Quarter: 2014Q2

REPORT INFORMATION
  Report Type: Spontaneous
  Country: US (occurrence: US)
  Receive Date: 20140305
  Receipt Date: 20140604
  Transmission Date: 20141212
  Serious: Yes (Hospitalization, Other)
  Sender: FDA-Public Use
  Company Number: US-ACTELION-A-US2014-95687

PATIENT
  Age: 57 Year
  Sex: Female

DRUGS (22)
  1. VENTAVIS [Suspect]
     Indication: PULMONARY ARTERIAL HYPERTENSION
     Dosage: 2.5 MCG, 6XDAY
     Route: 055
     Dates: start: 20131126
  2. VENTAVIS [Suspect]
     Dosage: 5 MCG, 6-9X/DAY
     Route: 055
     Dates: start: 20131126
  3. REVATIO [Concomitant]
     Dosage: 20 MG TID
  4. LETAIRIS [Concomitant]
     Dosage: 10 MG QD
  5. WARFARIN [Concomitant]
  6. OXYGEN [Concomitant]
  7. PRILOSEC [Concomitant]
     Dosage: 40 MG QHS
  8. ALBUTEROL [Concomitant]
     Dosage: 2 PUFFS Q4H PRN
  9. ADVAIR [Concomitant]
     Dosage: 500/50 1 PUFF BID
  10. SINGULAIR [Concomitant]
     Dosage: 10 MG QHS
  11. CRESTOR [Concomitant]
     Dosage: 5 MG QHS
  12. ZOLOFT [Concomitant]
     Dosage: 200 MG QAM
  13. DITROPAN [Concomitant]
     Dosage: 2.5 MG TID
  14. ARAVA [Concomitant]
     Dosage: 20 MG QAM
  15. ACETAMINOPHEN [Concomitant]
     Dosage: 325 MG
  16. CLOTRIMAZOLE [Concomitant]
     Dosage: 1% TOP. CREAM PRN
  17. SERTRALINE [Concomitant]
     Dosage: 100 MG, UNK
     Route: 048
  18. LEFLUNOMIDE [Concomitant]
     Dosage: 20 MG, UNK
     Route: 048
  19. OMEPRAZOLE ACID REDUCER [Concomitant]
     Dosage: 20 MG, BID
     Route: 048
  20. CALCIUM [Concomitant]
     Dosage: 5 MG, UNK
     Route: 048
  21. DIPHENHYDRAMINE [Concomitant]
     Dosage: 25 MG, UNK
     Route: 048
  22. OXYBUTIN [Concomitant]
     Dosage: 10 MG, UNK

REACTIONS (11)
  - Leukaemia recurrent [Unknown]
  - Pyrexia [Recovered/Resolved]
  - Chills [Recovered/Resolved]
  - Hyperhidrosis [Recovered/Resolved]
  - Febrile neutropenia [Recovered/Resolved]
  - Anaemia [Recovering/Resolving]
  - Platelet count decreased [Recovering/Resolving]
  - Liver function test abnormal [Unknown]
  - Aspartate aminotransferase increased [Unknown]
  - Alanine aminotransferase increased [Unknown]
  - Blood alkaline phosphatase increased [Unknown]
